FAERS Safety Report 5177554-3 (Version None)
Quarter: 2006Q4

REPORT INFORMATION
  Report Type: 
  Country: None (occurrence: None)
  Receive Date: 20061218
  Receipt Date: 20060912
  Transmission Date: 20070319
  Serious: Yes (Hospitalization)
  Sender: FDA-Public Use
  Company Number: US-BOEHRINGER INGELHEIM PHARMACEUTICALS, INC.-2006-BP-10693BP

PATIENT
  Age: 87 Year
  Sex: Male

DRUGS (10)
  1. FLOMAX [Suspect]
     Indication: BENIGN PROSTATIC HYPERPLASIA
     Route: 048
     Dates: start: 20020101, end: 20060620
  2. FLOMAX [Suspect]
     Route: 048
     Dates: start: 20060703
  3. COUMADIN [Concomitant]
  4. SYNTHROID [Concomitant]
  5. MULTIVITAMIN-K [Concomitant]
  6. COZAAR [Concomitant]
  7. PANTOPRAZOLE SODIUM [Concomitant]
  8. PROSCAR [Concomitant]
  9. STOOL SOFTENER [Concomitant]
  10. IRON SUPPLEMENT [Concomitant]

REACTIONS (6)
  - ABDOMINAL PAIN UPPER [None]
  - BLOOD URINE PRESENT [None]
  - HAEMORRHAGE URINARY TRACT [None]
  - INSOMNIA [None]
  - NOCTURIA [None]
  - POLLAKIURIA [None]
